FAERS Safety Report 25826043 (Version 1)
Quarter: 2025Q3

REPORT INFORMATION
  Report Type: Spontaneous
  Country: US (occurrence: US)
  Receive Date: 20250919
  Receipt Date: 20250919
  Transmission Date: 20251021
  Serious: No
  Sender: Harrow Health
  Company Number: US-HARROW-HAR-2025-US-00265

PATIENT
  Sex: Female

DRUGS (3)
  1. VEVYE [Suspect]
     Active Substance: CYCLOSPORINE
     Route: 047
     Dates: start: 20250527
  2. New Drug [Concomitant]
  3. New Drug [Concomitant]

REACTIONS (2)
  - Ocular hyperaemia [Unknown]
  - Eye discharge [Unknown]
